FAERS Safety Report 16476649 (Version 1)
Quarter: 2019Q2

REPORT INFORMATION
  Report Type: Spontaneous
  Country: AU (occurrence: AU)
  Receive Date: 20190626
  Receipt Date: 20190626
  Transmission Date: 20190711
  Serious: Yes (Hospitalization, Other)
  Sender: FDA-Public Use
  Company Number: AU-009507513-1906AUS007108

PATIENT
  Age: 3 Year
  Sex: Male

DRUGS (7)
  1. PIMECROLIMUS. [Concomitant]
     Active Substance: PIMECROLIMUS
  2. HYDROCORTISONE. [Suspect]
     Active Substance: HYDROCORTISONE
     Dosage: EITHER METHYLPREDNISOLONE 0.1% OR MOMETASONE OINTMENT FOR THE FIRST 5 DAYS, THEN 5 DAYS OF 1% HYDROC
  3. MUPIROCIN. [Concomitant]
     Active Substance: MUPIROCIN
  4. MOMETASONE FUROATE. [Suspect]
     Active Substance: MOMETASONE FUROATE
     Indication: DERMATITIS ATOPIC
     Dosage: EITHER METHYLPREDNISOLONE 0.1% OR MOMETASONE OINTMENT FOR THE FIRST 5 DAYS, THEN 5 DAYS OF 1% HYDROC
  5. HYDROCORTISONE. [Suspect]
     Active Substance: HYDROCORTISONE
     Indication: DERMATITIS ATOPIC
     Dosage: INITIALLY
  6. PREDNISONE. [Concomitant]
     Active Substance: PREDNISONE
     Route: 048
  7. METHYLPREDNISOLONE. [Suspect]
     Active Substance: METHYLPREDNISOLONE
     Indication: DERMATITIS ATOPIC
     Dosage: EITHER METHYLPREDNISOLONE 0.1% OR MOMETASONE OINTMENT FOR THE FIRST 5 DAYS, THEN 5 DAYS OF 1% HYDROC

REACTIONS (6)
  - Steroid withdrawal syndrome [Recovered/Resolved]
  - Conjunctivitis allergic [Unknown]
  - Conjunctivitis bacterial [Unknown]
  - Astigmatism [Unknown]
  - Product administered to patient of inappropriate age [Unknown]
  - Skin infection [Unknown]
